FAERS Safety Report 18932186 (Version 2)
Quarter: 2021Q2

REPORT INFORMATION
  Report Type: Spontaneous
  Country: US (occurrence: US)
  Receive Date: 20210224
  Receipt Date: 20210604
  Transmission Date: 20210717
  Serious: No
  Sender: FDA-Public Use
  Company Number: US-BRISTOL-MYERS SQUIBB COMPANY-BMS-2021-018152

PATIENT
  Age: 36 Year
  Sex: Female

DRUGS (1)
  1. ORENCIA [Suspect]
     Active Substance: ABATACEPT
     Indication: RHEUMATOID ARTHRITIS
     Dosage: ONE DOSE
     Route: 058
     Dates: start: 20210217, end: 20210218

REACTIONS (5)
  - Urticaria [Recovering/Resolving]
  - Arthropod bite [Unknown]
  - Pruritus [Recovering/Resolving]
  - Injection site warmth [Unknown]
  - Pain [Unknown]

NARRATIVE: CASE EVENT DATE: 20210218
